FAERS Safety Report 9037989 (Version 1)
Quarter: 2013Q1

REPORT INFORMATION
  Report Type: Report from Study
  Country: US (occurrence: US)
  Receive Date: 20130129
  Receipt Date: 20130129
  Transmission Date: 20140127
  Serious: Yes (Hospitalization)
  Sender: FDA-Public Use
  Company Number: US-ABBOTT-12P-163-0919764-00

PATIENT
  Age: 64 Year
  Sex: Male

DRUGS (3)
  1. HUMIRA 40 MG/0.8 ML PEN [Suspect]
     Indication: PSORIASIS
     Dosage: INTERRUPTED
     Dates: start: 201203, end: 20120307
  2. HIGH CHOLESTEROL MEDICATION [Concomitant]
     Indication: PRODUCT USED FOR UNKNOWN INDICATION
  3. VITAMINS [Concomitant]
     Indication: VITAMIN SUPPLEMENTATION
     Dosage: OVER THE COUNTER

REACTIONS (2)
  - Musculoskeletal chest pain [Recovering/Resolving]
  - Device malfunction [Unknown]
